FAERS Safety Report 8437439-3 (Version None)
Quarter: 2012Q2

REPORT INFORMATION
  Report Type: 
  Country: None (occurrence: None)
  Receive Date: 20120614
  Receipt Date: 20120322
  Transmission Date: 20120825
  Serious: No
  Sender: FDA-Public Use
  Company Number: US-AMGEN-USASP2012006670

PATIENT
  Age: 79 Year
  Sex: Female
  Weight: 67.574 kg

DRUGS (8)
  1. ASPIRIN [Concomitant]
     Dosage: 81 MG, QD
  2. CIPROFLOXACIN [Concomitant]
     Dosage: 500 MG, QD
  3. NIACIN [Concomitant]
     Dosage: 1000 MG, QD
  4. NASONEX [Concomitant]
     Dosage: 50 MUG, QD
  5. TOPROL-XL [Concomitant]
     Dosage: 50 MG, QD
  6. PROLIA [Suspect]
     Indication: OSTEOPOROSIS POSTMENOPAUSAL
     Dosage: 60 MG, UNK
  7. CETIRIZINE [Concomitant]
     Dosage: 10 MG, QD
  8. MIACALCIN [Concomitant]
     Dosage: 200 IU, QD

REACTIONS (8)
  - FEELING HOT [None]
  - SKIN LESION [None]
  - SINUS DISORDER [None]
  - SKIN EXFOLIATION [None]
  - HYPERSENSITIVITY [None]
  - OCULAR HYPERAEMIA [None]
  - ERYTHEMA [None]
  - RASH [None]
